FAERS Safety Report 5201700-6 (Version None)
Quarter: 2007Q1

REPORT INFORMATION
  Report Type: 
  Country: None (occurrence: None)
  Receive Date: 20070108
  Receipt Date: 20061227
  Transmission Date: 20070707
  Serious: Yes (Hospitalization)
  Sender: FDA-Public Use
  Company Number: US-AMGEN-US204998

PATIENT
  Sex: Male

DRUGS (2)
  1. ENBREL [Suspect]
     Indication: PSORIASIS
     Route: 058
     Dates: start: 19981102
  2. ENBREL [Suspect]
     Indication: PUSTULAR PSORIASIS

REACTIONS (5)
  - CORONARY ARTERIAL STENT INSERTION [None]
  - EPISTAXIS [None]
  - HYPERHIDROSIS [None]
  - PARAESTHESIA [None]
  - TREMOR [None]
